FAERS Safety Report 22239417 (Version 2)
Quarter: 2023Q2

REPORT INFORMATION
  Report Type: Report from Study
  Country: CA (occurrence: CA)
  Receive Date: 20230421
  Receipt Date: 20230428
  Transmission Date: 20230722
  Serious: Yes (Other)
  Sender: FDA-Public Use
  Company Number: CA-002147023-NVSC2023CA087563

PATIENT

DRUGS (11)
  1. DICLOFENAC [Suspect]
     Active Substance: DICLOFENAC
     Indication: Pain
     Dosage: UNK
     Route: 065
  2. METFORMIN HYDROCHLORIDE [Suspect]
     Active Substance: METFORMIN HYDROCHLORIDE
     Indication: Product used for unknown indication
     Dosage: UNK
     Route: 065
  3. ATENOLOL [Suspect]
     Active Substance: ATENOLOL
     Indication: Product used for unknown indication
     Dosage: UNK
     Route: 065
  4. TYLENOL [Concomitant]
     Active Substance: ACETAMINOPHEN
     Indication: Pain
     Dosage: UNK
     Route: 065
  5. METHOTREXATE [Concomitant]
     Active Substance: METHOTREXATE
     Indication: Product used for unknown indication
     Dosage: UNK
     Route: 065
  6. BETAMETHASONE\CALCIPOTRIENE [Concomitant]
     Active Substance: BETAMETHASONE\CALCIPOTRIENE
     Indication: Product used for unknown indication
     Dosage: UNK
     Route: 065
  7. CALCIUM CARBONATE\ETIDRONATE DISODIUM [Concomitant]
     Active Substance: CALCIUM CARBONATE\ETIDRONATE DISODIUM
     Indication: Product used for unknown indication
     Dosage: UNK
     Route: 065
  8. MYOCHRYSINE [Concomitant]
     Active Substance: GOLD SODIUM THIOMALATE
     Indication: Product used for unknown indication
     Dosage: UNK
     Route: 065
  9. LIPITOR [Concomitant]
     Active Substance: ATORVASTATIN CALCIUM
     Indication: Product used for unknown indication
     Dosage: UNK
     Route: 065
  10. HYDROXYCHLOROQUINE [Concomitant]
     Active Substance: HYDROXYCHLOROQUINE
     Indication: Product used for unknown indication
     Dosage: UNK
     Route: 065
  11. TEMAZEPAM [Concomitant]
     Active Substance: TEMAZEPAM
     Indication: Product used for unknown indication
     Dosage: UNK
     Route: 065

REACTIONS (36)
  - Psoriatic arthropathy [Unknown]
  - Diabetes mellitus [Unknown]
  - Renal failure [Unknown]
  - Arthritis [Unknown]
  - Nephropathy [Unknown]
  - Bone density decreased [Unknown]
  - Movement disorder [Unknown]
  - Dyslipidaemia [Unknown]
  - Fall [Unknown]
  - Asthenia [Unknown]
  - Finger deformity [Unknown]
  - Liver disorder [Unknown]
  - Skin disorder [Unknown]
  - Hypertension [Unknown]
  - Fibrosis [Unknown]
  - Osteoporosis [Unknown]
  - Overweight [Unknown]
  - Psoriasis [Unknown]
  - Carbuncle [Unknown]
  - Body height decreased [Unknown]
  - Limb injury [Unknown]
  - Arthralgia [Unknown]
  - Dysstasia [Unknown]
  - Synovitis [Unknown]
  - Osteoarthritis [Unknown]
  - Musculoskeletal stiffness [Unknown]
  - Gait disturbance [Unknown]
  - Back pain [Unknown]
  - Joint range of motion decreased [Unknown]
  - Hepatic steatosis [Unknown]
  - Hepatic enzyme increased [Unknown]
  - Purpura [Unknown]
  - Sciatica [Unknown]
  - Chest pain [Unknown]
  - Musculoskeletal pain [Unknown]
  - Arthropathy [Unknown]

NARRATIVE: CASE EVENT DATE: 20180101
